FAERS Safety Report 6506208-3 (Version None)
Quarter: 2009Q4

REPORT INFORMATION
  Report Type: 
  Country: None (occurrence: None)
  Receive Date: 20091218
  Receipt Date: 20091207
  Transmission Date: 20100525
  Serious: Yes (Hospitalization, Other)
  Sender: FDA-Public Use
  Company Number: PHHO2009GB15241

PATIENT
  Age: 40 Year
  Sex: Female

DRUGS (7)
  1. PROLEUKIN [Suspect]
     Indication: PANCREATIC CARCINOMA METASTATIC
     Dosage: UNK
     Route: 042
     Dates: start: 20090923, end: 20090926
  2. CYCLOPHOSPHAMIDE [Suspect]
     Dosage: UNK
     Dates: start: 20090916, end: 20090917
  3. FLUDARABINE [Suspect]
     Dosage: UNK
     Dates: start: 20090918, end: 20090922
  4. MEROPENEM [Suspect]
     Dosage: UNK
     Dates: start: 20091004, end: 20091012
  5. MEROPENEM [Suspect]
     Dosage: UNK
     Dates: start: 20090918, end: 20090922
  6. TEICOPLANIN [Suspect]
     Dosage: UNK
     Dates: start: 20090918, end: 20090919
  7. TEICOPLANIN [Suspect]
     Dosage: UNK
     Dates: start: 20090923, end: 20090928

REACTIONS (8)
  - ABDOMINAL PAIN [None]
  - BLOOD BILIRUBIN INCREASED [None]
  - CLOSTRIDIUM DIFFICILE COLITIS [None]
  - DIARRHOEA [None]
  - FEBRILE NEUTROPENIA [None]
  - NEUTROPENIC SEPSIS [None]
  - PYREXIA [None]
  - THROMBOCYTOPENIA [None]
